FAERS Safety Report 21131958 (Version 1)
Quarter: 2022Q3

REPORT INFORMATION
  Report Type: Spontaneous
  Country: FR (occurrence: None)
  Receive Date: 20220726
  Receipt Date: 20220726
  Transmission Date: 20221027
  Serious: Yes (Hospitalization)
  Sender: FDA-Public Use
  Company Number: 2022A258228

PATIENT
  Age: 84 Year
  Sex: Male

DRUGS (3)
  1. ESOMEPRAZOLE [Suspect]
     Active Substance: ESOMEPRAZOLE
     Indication: Necrotising oesophagitis
     Dosage: MEDICATION TAKEN FOR SEVERAL YEARS
     Route: 048
     Dates: end: 20211227
  2. AUGMENTIN [Suspect]
     Active Substance: AMOXICILLIN\CLAVULANATE POTASSIUM
     Indication: Infection
     Route: 065
     Dates: start: 20211216, end: 20211221
  3. XARELTO [Concomitant]
     Active Substance: RIVAROXABAN
     Route: 048

REACTIONS (1)
  - Cholestasis [Recovering/Resolving]

NARRATIVE: CASE EVENT DATE: 20211227
